FAERS Safety Report 25465023 (Version 3)
Quarter: 2025Q4

REPORT INFORMATION
  Report Type: Spontaneous
  Country: US (occurrence: US)
  Receive Date: 20250622
  Receipt Date: 20251007
  Transmission Date: 20260117
  Serious: Yes (Other)
  Sender: SANOFI AVENTIS
  Company Number: US-SA-2025SA174944

PATIENT
  Age: 80 Year
  Sex: Female

DRUGS (1)
  1. DUPIXENT [Suspect]
     Active Substance: DUPILUMAB
     Indication: Chronic obstructive pulmonary disease
     Dosage: 300 MG, QOW
     Route: 058
     Dates: start: 20250522

REACTIONS (9)
  - Pneumonia [Unknown]
  - Respiratory tract congestion [Recovering/Resolving]
  - Condition aggravated [Recovering/Resolving]
  - Chest discomfort [Recovering/Resolving]
  - Sputum increased [Recovering/Resolving]
  - Weight decreased [Unknown]
  - Respiratory disorder [Unknown]
  - Product dose omission issue [Recovering/Resolving]
  - Intentional dose omission [Unknown]

NARRATIVE: CASE EVENT DATE: 20250101
